FAERS Safety Report 25027573 (Version 1)
Quarter: 2025Q1

REPORT INFORMATION
  Report Type: Spontaneous
  Country: US (occurrence: US)
  Receive Date: 20250301
  Receipt Date: 20250301
  Transmission Date: 20250409
  Serious: No
  Sender: SANOFI AVENTIS
  Company Number: US-SA-2025SA059171

PATIENT
  Sex: Female
  Weight: 70.91 kg

DRUGS (3)
  1. DUPIXENT [Suspect]
     Active Substance: DUPILUMAB
     Indication: Dermatitis atopic
     Dosage: 300 MG, QOW
     Route: 058
     Dates: start: 202106
  2. EUCERIN SKIN CALMING ITCH RELIEF TREATMENT [Concomitant]
     Active Substance: MENTHOL
  3. TEA TREE OIL [Concomitant]
     Active Substance: TEA TREE OIL

REACTIONS (1)
  - Influenza [Unknown]
